FAERS Safety Report 10150348 (Version 1)
Quarter: 2014Q2

REPORT INFORMATION
  Report Type: Spontaneous
  Country: US (occurrence: US)
  Receive Date: 20140502
  Receipt Date: 20140502
  Transmission Date: 20141212
  Serious: Yes (Hospitalization, Other)
  Sender: FDA-Public Use
  Company Number: US-ASTRAZENECA-2014SE28573

PATIENT
  Age: 60 Year
  Sex: Female
  Weight: 71.6 kg

DRUGS (21)
  1. LISINOPRIL [Suspect]
     Route: 048
  2. LISINOPRIL [Suspect]
     Route: 048
  3. METOPROLOL [Suspect]
     Route: 048
  4. TOPROL [Suspect]
     Route: 048
  5. SEROQUEL [Suspect]
     Route: 048
  6. MORPHINE SULPHATE [Suspect]
     Route: 065
  7. ELVITEGRAVIR [Suspect]
     Indication: HIV INFECTION
     Route: 048
     Dates: start: 20070506
  8. PAIN MEDICATION [Suspect]
     Indication: PAIN
     Route: 065
  9. RITONAVIR [Concomitant]
     Dates: start: 20131222, end: 20140119
  10. DARUNAVIR [Concomitant]
     Dates: start: 20131222, end: 20140119
  11. ASPIRIN [Concomitant]
     Dates: start: 20131229
  12. BISACODYL [Concomitant]
     Dates: start: 20131228
  13. CARVEDILOL [Concomitant]
     Dates: start: 20131229
  14. DIAZEPAM [Concomitant]
     Dates: start: 20131226, end: 20140123
  15. ETRAVIRINE [Concomitant]
     Dates: start: 20131223, end: 20140120
  16. NITROGLYCERIN [Concomitant]
     Dates: start: 20131222, end: 20140119
  17. OXYCODONE [Concomitant]
     Dates: start: 20131230, end: 20140106
  18. POLYETHYLENE GLYCOL [Concomitant]
     Dates: start: 20131228
  19. SULFAMETHOXAZOLE W/THRIMETHOPRIM [Concomitant]
     Dates: start: 20140102
  20. CYANOCOBALAMIN [Concomitant]
  21. GABAPENTIN [Concomitant]

REACTIONS (30)
  - Mental status changes [Recovered/Resolved]
  - Agitation [Unknown]
  - Pneumonia [Recovered/Resolved]
  - Blood creatine phosphokinase MB increased [Unknown]
  - Dehydration [Unknown]
  - Injury [Unknown]
  - Aspiration [Unknown]
  - Procalcitonin increased [Unknown]
  - Meningitis [Unknown]
  - Encephalitis [Unknown]
  - Lumbar puncture [Unknown]
  - Chest pain [Unknown]
  - Troponin increased [Unknown]
  - Ischaemia [Unknown]
  - Ejection fraction decreased [Unknown]
  - Lacunar infarction [Unknown]
  - Ischaemic cardiomyopathy [Unknown]
  - Urinary retention [Recovered/Resolved]
  - Blood creatine phosphokinase increased [Unknown]
  - Renal failure acute [Recovered/Resolved]
  - Confusional state [Unknown]
  - Dizziness [Unknown]
  - Skin lesion [Unknown]
  - Hypotension [Unknown]
  - Lethargy [Unknown]
  - Fall [Unknown]
  - Fluid intake reduced [Unknown]
  - CD4 lymphocytes decreased [Unknown]
  - Pain [Unknown]
  - Incorrect dose administered [Unknown]
